FAERS Safety Report 5900193-0 (Version None)
Quarter: 2008Q3

REPORT INFORMATION
  Report Type: 
  Country: None (occurrence: None)
  Receive Date: 20080926
  Receipt Date: 20080922
  Transmission Date: 20090109
  Serious: Yes (Hospitalization, Other)
  Sender: FDA-Public Use
  Company Number: US-BAXTER-2008BH009995

PATIENT
  Sex: Male

DRUGS (2)
  1. LACTATED RINGER'S [Suspect]
     Indication: WOUND TREATMENT
     Dosage: DOSE UNIT:UNKNOWN
     Route: 050
     Dates: start: 20070101, end: 20070101
  2. LACTATED RINGER'S [Suspect]
     Dosage: DOSE UNIT:UNKNOWN
     Route: 050
     Dates: start: 20070201, end: 20070201

REACTIONS (2)
  - PSEUDOMONAS INFECTION [None]
  - PULMONARY EMBOLISM [None]
